FAERS Safety Report 9272397 (Version 2)
Quarter: 2013Q2

REPORT INFORMATION
  Report Type: Spontaneous
  Country: IT (occurrence: IT)
  Receive Date: 20130506
  Receipt Date: 20130520
  Transmission Date: 20140414
  Serious: Yes (Hospitalization)
  Sender: FDA-Public Use
  Company Number: IT-ABBOTT-13X-083-1082405-00

PATIENT
  Age: 45 Year
  Sex: Male

DRUGS (1)
  1. KLACID [Suspect]
     Indication: TONSILLITIS
     Route: 048
     Dates: start: 20130124, end: 20130126

REACTIONS (1)
  - Tachycardia [Recovered/Resolved]
